FAERS Safety Report 5813692-7 (Version None)
Quarter: 2008Q3

REPORT INFORMATION
  Report Type: 
  Country: None (occurrence: None)
  Receive Date: 20080716
  Receipt Date: 20080716
  Transmission Date: 20090109
  Serious: Yes (Death)
  Sender: FDA-Public Use
  Company Number: None

PATIENT
  Age: 45 Year
  Sex: Female

DRUGS (1)
  1. BONTRIL [Suspect]
     Indication: WEIGHT CONTROL

REACTIONS (11)
  - CATATONIA [None]
  - DRUG WITHDRAWAL SYNDROME [None]
  - EPSTEIN-BARR VIRUS TEST POSITIVE [None]
  - HALLUCINATION [None]
  - MANIA [None]
  - MENINGITIS ASEPTIC [None]
  - MENTAL STATUS CHANGES [None]
  - NERVOUS SYSTEM DISORDER [None]
  - RESPIRATORY FAILURE [None]
  - SEPSIS [None]
  - STATUS EPILEPTICUS [None]
